FAERS Safety Report 6322651-X (Version None)
Quarter: 2009Q3

REPORT INFORMATION
  Report Type: 
  Country: None (occurrence: None)
  Receive Date: 20090824
  Receipt Date: 20090401
  Transmission Date: 20100115
  Serious: No
  Sender: FDA-Public Use
  Company Number: US-ABBOTT-09P-163-0558311-00

PATIENT
  Age: 56 Year
  Sex: Male
  Weight: 67.192 kg

DRUGS (10)
  1. NIASPAN [Suspect]
     Indication: HIGH DENSITY LIPOPROTEIN DECREASED
     Route: 048
     Dates: start: 20090109, end: 20090209
  2. NIASPAN [Suspect]
     Indication: BLOOD CHOLESTEROL
     Route: 048
     Dates: start: 20090209, end: 20090315
  3. NIASPAN [Suspect]
     Route: 048
     Dates: start: 20090315
  4. NIASPAN [Suspect]
     Route: 048
     Dates: end: 20090301
  5. ASPIRIN [Concomitant]
     Indication: HYPERTENSION
     Route: 048
  6. ASPIRIN [Concomitant]
     Indication: FLUSHING
  7. ASPIRIN [Concomitant]
     Indication: PROPHYLAXIS
  8. ATENOLOL [Concomitant]
     Indication: HYPERTENSION
     Route: 048
  9. COZAAR [Concomitant]
     Indication: HYPERTENSION
     Route: 048
  10. VITAMIN D [Concomitant]
     Indication: VITAMIN D DECREASED
     Route: 048
     Dates: start: 20090301

REACTIONS (4)
  - BLOOD GLUCOSE INCREASED [None]
  - PARAESTHESIA [None]
  - PRURITUS GENERALISED [None]
  - WEIGHT DECREASED [None]
